FAERS Safety Report 8275158-7 (Version None)
Quarter: 2012Q2

REPORT INFORMATION
  Report Type: 
  Country: None (occurrence: None)
  Receive Date: 20120411
  Receipt Date: 20120405
  Transmission Date: 20120825
  Serious: Yes (Other)
  Sender: FDA-Public Use
  Company Number: PHHY2012US029781

PATIENT
  Age: 12 Year
  Sex: Female
  Weight: 40 kg

DRUGS (5)
  1. PREDNISONE TAB [Suspect]
     Dosage: 5 MG, QOD
  2. ATENOLOL [Suspect]
     Indication: HYPERTHYROIDISM
     Dosage: 25 MG, UNK
  3. RADIOACTIVE IODINE TREATMENT [Suspect]
     Dosage: 11.1 MCI, UNK
  4. PREDNISONE TAB [Suspect]
     Dosage: 10 MG, DAILY
  5. PREDNISONE TAB [Suspect]
     Indication: STATUS ASTHMATICUS
     Dosage: 10 MG, DAILY

REACTIONS (15)
  - HYPOCALCAEMIA [None]
  - DYSPNOEA [None]
  - BONE PAIN [None]
  - ASTHENIA [None]
  - DYSPHAGIA [None]
  - BLOOD PHOSPHORUS INCREASED [None]
  - BRONCHOSPASM [None]
  - PAIN IN EXTREMITY [None]
  - TREMOR [None]
  - HYPOPARATHYROIDISM [None]
  - DIARRHOEA [None]
  - RESTLESSNESS [None]
  - MUSCLE SPASMS [None]
  - VITAMIN D DEFICIENCY [None]
  - PARAESTHESIA [None]
